FAERS Safety Report 9166788 (Version 2)
Quarter: 2013Q2

REPORT INFORMATION
  Report Type: Spontaneous
  Country: US (occurrence: US)
  Receive Date: 20121116
  Receipt Date: 20130412
  Transmission Date: 20140414
  Serious: Yes (Other)
  Sender: FDA-Public Use
  Company Number: US-RB-046694-12

PATIENT
  Age: 37 Year
  Sex: Female

DRUGS (8)
  1. SUBOXONE TABLET [Suspect]
     Indication: DRUG DEPENDENCE
     Route: 060
     Dates: start: 201103
  2. PERCOCET [Suspect]
     Indication: RESTLESS LEGS SYNDROME
     Route: 048
     Dates: start: 2005, end: 201103
  3. PERCOCET [Suspect]
     Indication: RESTLESS LEGS SYNDROME
     Route: 048
     Dates: start: 2005, end: 201103
  4. GABAPENTIN [Suspect]
     Indication: EPILEPSY
     Dosage: DOSING DETAILS UNKNOWN
     Route: 065
     Dates: start: 1987
  5. PRENATAL VITAMINS [Concomitant]
     Indication: PRODUCT USED FOR UNKNOWN INDICATION
     Dosage: UNKNOWN DOSAGE DETAILS
     Route: 065
  6. IRON PILLS [Concomitant]
     Indication: PRODUCT USED FOR UNKNOWN INDICATION
     Dosage: UNKNOWN DOSAGE DETAILS
     Route: 065
  7. VITAMIN B 12 SHOTS [Concomitant]
     Indication: VITAMIN SUPPLEMENTATION
     Dosage: DOSING DETAILS UNKNOWN
     Route: 065
  8. FOLIC ACID [Concomitant]
     Indication: VITAMIN SUPPLEMENTATION
     Dosage: DOSING DETAILS UNKNOWN
     Route: 065

REACTIONS (4)
  - Muscle spasms [Recovered/Resolved]
  - Nausea [Recovered/Resolved]
  - Exposure during pregnancy [Recovered/Resolved]
  - Premature delivery [Recovered/Resolved]
